FAERS Safety Report 24582896 (Version 2)
Quarter: 2025Q3

REPORT INFORMATION
  Report Type: Report from Study
  Country: US (occurrence: US)
  Receive Date: 20241106
  Receipt Date: 20250809
  Transmission Date: 20251021
  Serious: Yes (Other)
  Sender: ALEXION PHARMACEUTICALS
  Company Number: 2023A177738, 2023A082982, 2022A303653, 2022A074677, 2021A692671

PATIENT
  Age: 71 Year
  Sex: Female

DRUGS (17)
  1. BENRALIZUMAB [Suspect]
     Active Substance: BENRALIZUMAB
     Indication: Asthma
     Dosage: 30 MILLIGRAM, Q8W
  2. PLAVIX [Concomitant]
     Active Substance: CLOPIDOGREL BISULFATE
  3. ASPIRIN [Concomitant]
     Active Substance: ASPIRIN
  4. CARDIZEM [Concomitant]
     Active Substance: DILTIAZEM HYDROCHLORIDE
  5. CLOPIDOGREL [Concomitant]
     Active Substance: CLOPIDOGREL BISULFATE
  6. FOSAMAX [Concomitant]
     Active Substance: ALENDRONATE SODIUM
  7. VITAMIN C [Concomitant]
     Active Substance: ASCORBIC ACID
  8. ALENDRONATE [Concomitant]
     Active Substance: ALENDRONATE SODIUM
  9. LEVOCETIRIZINE DIHYDROCHLORIDE [Concomitant]
     Active Substance: LEVOCETIRIZINE DIHYDROCHLORIDE
  10. ALBUTEROL SULFATE [Concomitant]
     Active Substance: ALBUTEROL SULFATE
  11. ATORVASTATIN [Concomitant]
     Active Substance: ATORVASTATIN
  12. FAMOTIDINE [Concomitant]
     Active Substance: FAMOTIDINE
  13. MELOXICAM [Concomitant]
     Active Substance: MELOXICAM
  14. MONTELUKAST [Concomitant]
     Active Substance: MONTELUKAST
  15. VITAMINS [Concomitant]
     Active Substance: VITAMINS
  16. Vitamin b complex plus [Concomitant]
  17. VITAMIN D [Concomitant]
     Active Substance: VITAMIN D NOS

REACTIONS (6)
  - Arterial rupture [Recovered/Resolved with Sequelae]
  - Arterial occlusive disease [Unknown]
  - Aneurysm [Unknown]
  - Bronchitis chronic [Unknown]
  - Abdominal discomfort [Unknown]
  - Chronic obstructive pulmonary disease [Unknown]

NARRATIVE: CASE EVENT DATE: 20240501
